FAERS Safety Report 24252253 (Version 1)
Quarter: 2024Q3

REPORT INFORMATION
  Report Type: Spontaneous
  Country: US (occurrence: US)
  Receive Date: 20240827
  Receipt Date: 20240827
  Transmission Date: 20241016
  Serious: No
  Sender: CHIESI
  Company Number: US-CHIESI-2024CHF03780

PATIENT
  Age: 51 Year
  Sex: Male

DRUGS (1)
  1. ELFABRIO [Suspect]
     Active Substance: PEGUNIGALSIDASE ALFA-IWXJ
     Indication: Product used for unknown indication
     Dosage: UNK, QOW
     Route: 042

REACTIONS (5)
  - Energy increased [Unknown]
  - Blood creatinine decreased [Recovering/Resolving]
  - Protein total decreased [Recovering/Resolving]
  - Personality change [Unknown]
  - Therapeutic response unexpected [Recovering/Resolving]
